FAERS Safety Report 12907633 (Version 5)
Quarter: 2018Q1

REPORT INFORMATION
  Report Type: Report from Study
  Country: IN (occurrence: IN)
  Receive Date: 20161103
  Receipt Date: 20180122
  Transmission Date: 20180508
  Serious: Yes (Hospitalization)
  Sender: FDA-Public Use
  Company Number: IN-PFIZER INC-2016491396

PATIENT
  Age: 60 Year
  Sex: Female
  Weight: 48 kg

DRUGS (7)
  1. PACLITAXEL. [Suspect]
     Active Substance: PACLITAXEL
     Indication: NON-SMALL CELL LUNG CANCER
     Dosage: 288 MG, CYCLIC
     Route: 042
     Dates: start: 20160910, end: 20160910
  2. CARBOPLATIN. [Suspect]
     Active Substance: CARBOPLATIN
     Indication: NON-SMALL CELL LUNG CANCER
     Dosage: 809.16 MG, CYCLIC
     Route: 042
     Dates: start: 20160910, end: 20160910
  3. CARBOPLATIN. [Suspect]
     Active Substance: CARBOPLATIN
     Dosage: 809.16 MG, CYCLIC
     Route: 042
     Dates: start: 20160930, end: 20160930
  4. BEVACIZUMAB. [Suspect]
     Active Substance: BEVACIZUMAB
     Indication: NON-SMALL CELL LUNG CANCER
     Dosage: 705 MG, EVERY 3 WEEKS
     Route: 042
     Dates: start: 20160910
  5. CARBOPLATIN. [Suspect]
     Active Substance: CARBOPLATIN
     Dosage: 849.78 MG, CYCLIC
     Route: 042
     Dates: start: 20161027, end: 20161027
  6. PACLITAXEL. [Suspect]
     Active Substance: PACLITAXEL
     Dosage: 288 MG, CYCLIC
     Route: 042
     Dates: start: 20160930, end: 20160930
  7. PACLITAXEL. [Suspect]
     Active Substance: PACLITAXEL
     Dosage: 296 MG, CYCLIC
     Route: 042
     Dates: start: 20161027, end: 20161027

REACTIONS (1)
  - Lower respiratory tract infection [Recovered/Resolved]

NARRATIVE: CASE EVENT DATE: 20161019
